FAERS Safety Report 10655237 (Version 1)
Quarter: 2014Q4

REPORT INFORMATION
  Report Type: Spontaneous
  Country: None (occurrence: None)
  Receive Date: 20141215
  Receipt Date: 20141215
  Transmission Date: 20150529
  Serious: No
  Sender: FDA-Public Use
  Company Number: None

PATIENT
  Age: 57 Year
  Sex: Female
  Weight: 83.01 kg

DRUGS (1)
  1. GENERIC LEXAPRO [Suspect]
     Active Substance: ESCITALOPRAM OXALATE
     Indication: DEPRESSION
     Route: 048
     Dates: start: 20141201, end: 20141210

REACTIONS (8)
  - Insomnia [None]
  - Product substitution issue [None]
  - Tearfulness [None]
  - Negative thoughts [None]
  - Nervousness [None]
  - Drug ineffective [None]
  - Decreased appetite [None]
  - Head discomfort [None]

NARRATIVE: CASE EVENT DATE: 20141207
